FAERS Safety Report 5447579-9 (Version None)
Quarter: 2007Q3

REPORT INFORMATION
  Report Type: 
  Country: None (occurrence: None)
  Receive Date: 20070905
  Receipt Date: 20070822
  Transmission Date: 20080115
  Serious: Yes (Death)
  Sender: FDA-Public Use
  Company Number: 2007P1000267

PATIENT
  Age: 21 Year
  Sex: Female

DRUGS (7)
  1. BUSULFAN                 (BUSULFAN) [Suspect]
     Indication: STEM CELL TRANSPLANT
     Dosage: 6.2 ML;BID;IV; 6.2 ML;QID;IV; 6.2 ML;X1;IV
     Route: 042
     Dates: start: 20070418, end: 20070418
  2. BUSULFAN                 (BUSULFAN) [Suspect]
     Indication: STEM CELL TRANSPLANT
     Dosage: 6.2 ML;BID;IV; 6.2 ML;QID;IV; 6.2 ML;X1;IV
     Route: 042
     Dates: start: 20070419, end: 20070419
  3. BUSULFAN                 (BUSULFAN) [Suspect]
     Indication: STEM CELL TRANSPLANT
     Dosage: 6.2 ML;BID;IV; 6.2 ML;QID;IV; 6.2 ML;X1;IV
     Route: 042
     Dates: start: 20070420, end: 20070420
  4. PHENYTOIN [Concomitant]
  5. CYCLOPHOSPHAMIDE [Concomitant]
  6. METHOTREXATE [Concomitant]
  7. CYCLOSPORINE [Concomitant]

REACTIONS (11)
  - CYSTITIS HAEMORRHAGIC [None]
  - DIARRHOEA [None]
  - DISSEMINATED INTRAVASCULAR COAGULATION [None]
  - MALAISE [None]
  - MULTI-ORGAN FAILURE [None]
  - NAUSEA [None]
  - NEUTROPENIA [None]
  - STAPHYLOCOCCAL SEPSIS [None]
  - STEM CELL TRANSPLANT [None]
  - STOMATITIS [None]
  - VOMITING [None]
